FAERS Safety Report 25837506 (Version 1)
Quarter: 2025Q3

REPORT INFORMATION
  Report Type: Spontaneous
  Country: US (occurrence: US)
  Receive Date: 20250923
  Receipt Date: 20250923
  Transmission Date: 20251021
  Serious: Yes (Other)
  Sender: ELI LILLY AND COMPANY
  Company Number: US-ELI_LILLY_AND_COMPANY-US202509018291

PATIENT
  Age: 43 Year
  Sex: Female

DRUGS (2)
  1. HUMALOG [Suspect]
     Active Substance: INSULIN LISPRO
     Indication: Product used for unknown indication
     Route: 065
  2. LANTUS [Concomitant]
     Active Substance: INSULIN GLARGINE
     Indication: Product used for unknown indication

REACTIONS (5)
  - Blood glucose increased [Recovering/Resolving]
  - Blood glucose decreased [Recovering/Resolving]
  - Feeling hot [Recovering/Resolving]
  - Hyperhidrosis [Recovering/Resolving]
  - Presyncope [Recovering/Resolving]
